APPROVED DRUG PRODUCT: BUTALBITAL, ACETAMINOPHEN AND CAFFEINE
Active Ingredient: ACETAMINOPHEN; BUTALBITAL; CAFFEINE
Strength: 500MG;50MG;40MG
Dosage Form/Route: CAPSULE;ORAL
Application: A040261 | Product #001
Applicant: HIKMA PHARMACEUTICALS LLC
Approved: Oct 28, 1998 | RLD: No | RS: No | Type: DISCN